FAERS Safety Report 9259629 (Version 3)
Quarter: 2013Q3

REPORT INFORMATION
  Report Type: Spontaneous
  Country: US (occurrence: US)
  Receive Date: 20130429
  Receipt Date: 20130710
  Transmission Date: 20140515
  Serious: Yes (Hospitalization, Other)
  Sender: FDA-Public Use
  Company Number: US-UCBSA-084293

PATIENT
  Age: 54 Year
  Sex: Male
  Weight: 72.57 kg

DRUGS (16)
  1. CIMZIA [Suspect]
     Indication: RHEUMATOID ARTHRITIS
     Dosage: ONLY TOOK ONE DOSE
     Route: 058
     Dates: start: 20130320, end: 20130320
  2. CIMZIA [Suspect]
     Indication: CROHN^S DISEASE
     Dosage: ONLY TOOK ONE DOSE
     Route: 058
     Dates: start: 20130320, end: 20130320
  3. LEVAQUIN [Suspect]
  4. REMICADE [Concomitant]
     Indication: RHEUMATOID ARTHRITIS
     Dosage: UNKNOWN
  5. REMICADE [Concomitant]
     Indication: CROHN^S DISEASE
     Dosage: UNKNOWN
  6. PEXEVA [Concomitant]
     Indication: DEPRESSION
     Route: 048
  7. CONCERTA [Concomitant]
     Indication: DISTURBANCE IN ATTENTION
  8. IMURAN [Concomitant]
     Indication: IMMUNOSUPPRESSANT DRUG THERAPY
     Route: 048
  9. PREDNISONE [Concomitant]
     Indication: RHEUMATOID ARTHRITIS
     Route: 048
  10. PREDNISONE [Concomitant]
     Indication: DYSPNOEA
     Route: 048
  11. PREDNISONE [Concomitant]
     Indication: CROHN^S DISEASE
     Route: 048
  12. HYDROCODONE/ACETAMINOPHEN [Concomitant]
     Indication: BACK PAIN
     Dosage: 7.5/100 MG FOUR TIMES A DAY - TOATAL DAILY DOSE: 30/400 MG
     Route: 048
  13. ALBUTEROL [Concomitant]
     Indication: DYSPNOEA
     Dosage: 3-4 TIMES A DAY
     Route: 055
  14. FLOVENT [Concomitant]
     Indication: DYSPNOEA
     Dosage: 2 PUFFS AM: 2 PUFFS PM
     Route: 055
  15. KLONOPIN [Concomitant]
     Indication: ANXIETY
     Dosage: 0.5 MG QD
     Route: 048
  16. KLONOPIN [Concomitant]
     Indication: PANIC ATTACK
     Dosage: 0.5 MG QD
     Route: 048

REACTIONS (10)
  - Loss of consciousness [Recovered/Resolved]
  - Noninfective bronchitis [Recovered/Resolved]
  - Pneumonia [Recovering/Resolving]
  - Dyspnoea [Not Recovered/Not Resolved]
  - Rib fracture [Not Recovered/Not Resolved]
  - Feeling abnormal [Unknown]
  - Fall [Recovered/Resolved]
  - Tendon pain [Not Recovered/Not Resolved]
  - Tendon rupture [Not Recovered/Not Resolved]
  - Vision blurred [Not Recovered/Not Resolved]
